FAERS Safety Report 4924629-7 (Version None)
Quarter: 2006Q1

REPORT INFORMATION
  Report Type: 
  Country: None (occurrence: None)
  Receive Date: 20060222
  Receipt Date: 20060209
  Transmission Date: 20060701
  Serious: Yes (Other)
  Sender: FDA-Public Use
  Company Number: B0411687A

PATIENT
  Age: 41 Year
  Sex: Female

DRUGS (2)
  1. LAMICTAL [Suspect]
     Indication: AFFECTIVE DISORDER
  2. VALPROIC ACID [Suspect]
     Indication: BIPOLAR DISORDER

REACTIONS (3)
  - AGITATION [None]
  - MANIA [None]
  - PSYCHOMOTOR HYPERACTIVITY [None]
